FAERS Safety Report 18660698 (Version 3)
Quarter: 2021Q3

REPORT INFORMATION
  Report Type: Other
  Country: CA (occurrence: CA)
  Receive Date: 20201223
  Receipt Date: 20210913
  Transmission Date: 20211014
  Serious: No
  Sender: FDA-Public Use
  Company Number: CA-ROCHE-2659032

PATIENT
  Age: 45 Year
  Sex: Female

DRUGS (3)
  1. IMOVAN [Concomitant]
     Active Substance: ZOPICLONE
     Dosage: DOSE: 1/2 CO TO 1 HS FOR 15 YEARS
  2. VALTREX [Concomitant]
     Active Substance: VALACYCLOVIR HYDROCHLORIDE
  3. OCREVUS [Suspect]
     Active Substance: OCRELIZUMAB
     Indication: RELAPSING-REMITTING MULTIPLE SCLEROSIS
     Dosage: 300 MG AT DAY 0 AND 14, THEN 600 MG EVERY 6 MONTH
     Route: 042
     Dates: start: 20200120

REACTIONS (28)
  - Fatigue [Not Recovered/Not Resolved]
  - Oropharyngeal pain [Recovered/Resolved]
  - Dyspepsia [Recovered/Resolved]
  - Arthralgia [Not Recovered/Not Resolved]
  - Dizziness [Not Recovered/Not Resolved]
  - Pain in extremity [Recovered/Resolved]
  - Peripheral swelling [Recovering/Resolving]
  - Muscle spasms [Recovered/Resolved]
  - Feeling hot [Recovered/Resolved]
  - Diarrhoea [Recovered/Resolved]
  - Contusion [Recovered/Resolved]
  - Depression [Recovering/Resolving]
  - Suspected COVID-19 [Unknown]
  - Pyrexia [Recovered/Resolved]
  - Fall [Not Recovered/Not Resolved]
  - Poor quality sleep [Unknown]
  - Hypoaesthesia [Not Recovered/Not Resolved]
  - Faeces pale [Recovered/Resolved]
  - Arthropod sting [Recovered/Resolved]
  - Musculoskeletal stiffness [Not Recovered/Not Resolved]
  - Vomiting [Recovered/Resolved]
  - Balance disorder [Not Recovered/Not Resolved]
  - Peripheral swelling [Recovered/Resolved]
  - Drug ineffective [Unknown]
  - Erythema [Recovering/Resolving]
  - Gait disturbance [Not Recovered/Not Resolved]
  - Decreased appetite [Recovered/Resolved]
  - Nausea [Recovered/Resolved]

NARRATIVE: CASE EVENT DATE: 20200811
